FAERS Safety Report 23066714 (Version 1)
Quarter: 2023Q4

REPORT INFORMATION
  Report Type: Spontaneous
  Country: BR (occurrence: BR)
  Receive Date: 20231016
  Receipt Date: 20231016
  Transmission Date: 20240110
  Serious: Yes (Other)
  Sender: FDA-Public Use
  Company Number: BR-CHEPLA-2023012869

PATIENT
  Sex: Female
  Weight: 68 kg

DRUGS (5)
  1. CLONAZEPAM [Suspect]
     Active Substance: CLONAZEPAM
     Indication: Insomnia
     Dosage: EVERY NIGHT/ABOUT 15 YEARS AGO (2008)/ STOPPED AFTER 11 YEARS.
     Route: 048
     Dates: start: 2008
  2. CLONAZEPAM [Suspect]
     Active Substance: CLONAZEPAM
     Indication: Insomnia
     Dosage: EVERY NIGHT
     Route: 048
     Dates: start: 2021, end: 2021
  3. CLONAZEPAM [Suspect]
     Active Substance: CLONAZEPAM
     Indication: Insomnia
     Dosage: WHEN IS NECESSARY
     Route: 048
     Dates: start: 20231004
  4. ATENOLOL\CHLORTHALIDONE [Concomitant]
     Active Substance: ATENOLOL\CHLORTHALIDONE
     Indication: Hypertension
     Dosage: DAILY DOSE: 1 DOSAGE FORM
     Route: 048
     Dates: start: 2013
  5. AMLODIPINE [Concomitant]
     Active Substance: AMLODIPINE BESYLATE
     Indication: Hypertension
     Dosage: DAILY DOSE: 1 DOSAGE FORM
     Route: 048
     Dates: start: 2013

REACTIONS (9)
  - Diabetes mellitus [Not Recovered/Not Resolved]
  - Depressive symptom [Recovered/Resolved]
  - Depressive symptom [Not Recovered/Not Resolved]
  - Malaise [Recovered/Resolved]
  - Malaise [Not Recovered/Not Resolved]
  - Rest regimen [Not Recovered/Not Resolved]
  - Patient isolation [Not Recovered/Not Resolved]
  - Prescription drug used without a prescription [Not Recovered/Not Resolved]
  - Product use in unapproved indication [Not Recovered/Not Resolved]

NARRATIVE: CASE EVENT DATE: 20080101
